FAERS Safety Report 24950511 (Version 3)
Quarter: 2025Q2

REPORT INFORMATION
  Report Type: Spontaneous
  Country: CA (occurrence: CA)
  Receive Date: 20250210
  Receipt Date: 20250616
  Transmission Date: 20250716
  Serious: Yes (Death, Other)
  Sender: MYLAN
  Company Number: CA-MYLANLABS-2025M1011183

PATIENT
  Age: 51 Year
  Sex: Male

DRUGS (36)
  1. SERTRALINE [Suspect]
     Active Substance: SERTRALINE HYDROCHLORIDE
     Indication: Product used for unknown indication
  2. SERTRALINE [Suspect]
     Active Substance: SERTRALINE HYDROCHLORIDE
     Route: 065
  3. SERTRALINE [Suspect]
     Active Substance: SERTRALINE HYDROCHLORIDE
     Route: 065
  4. SERTRALINE [Suspect]
     Active Substance: SERTRALINE HYDROCHLORIDE
  5. AMPHETAMINE [Suspect]
     Active Substance: AMPHETAMINE
     Indication: Product used for unknown indication
  6. AMPHETAMINE [Suspect]
     Active Substance: AMPHETAMINE
     Route: 065
  7. AMPHETAMINE [Suspect]
     Active Substance: AMPHETAMINE
     Route: 065
  8. AMPHETAMINE [Suspect]
     Active Substance: AMPHETAMINE
  9. ARIPIPRAZOLE [Suspect]
     Active Substance: ARIPIPRAZOLE
     Indication: Product used for unknown indication
  10. ARIPIPRAZOLE [Suspect]
     Active Substance: ARIPIPRAZOLE
     Route: 065
  11. ARIPIPRAZOLE [Suspect]
     Active Substance: ARIPIPRAZOLE
     Route: 065
  12. ARIPIPRAZOLE [Suspect]
     Active Substance: ARIPIPRAZOLE
  13. BENZOYLECGONINE [Suspect]
     Active Substance: BENZOYLECGONINE
     Indication: Product used for unknown indication
  14. BENZOYLECGONINE [Suspect]
     Active Substance: BENZOYLECGONINE
     Route: 065
  15. BENZOYLECGONINE [Suspect]
     Active Substance: BENZOYLECGONINE
     Route: 065
  16. BENZOYLECGONINE [Suspect]
     Active Substance: BENZOYLECGONINE
  17. BUPRENORPHINE [Suspect]
     Active Substance: BUPRENORPHINE
     Indication: Product used for unknown indication
  18. BUPRENORPHINE [Suspect]
     Active Substance: BUPRENORPHINE
     Route: 065
  19. BUPRENORPHINE [Suspect]
     Active Substance: BUPRENORPHINE
     Route: 065
  20. BUPRENORPHINE [Suspect]
     Active Substance: BUPRENORPHINE
  21. FENTANYL [Suspect]
     Active Substance: FENTANYL
     Indication: Product used for unknown indication
  22. FENTANYL [Suspect]
     Active Substance: FENTANYL
     Route: 065
  23. FENTANYL [Suspect]
     Active Substance: FENTANYL
     Route: 065
  24. FENTANYL [Suspect]
     Active Substance: FENTANYL
  25. METHAMPHETAMINE [Suspect]
     Active Substance: METHAMPHETAMINE
     Indication: Product used for unknown indication
  26. METHAMPHETAMINE [Suspect]
     Active Substance: METHAMPHETAMINE
     Route: 065
  27. METHAMPHETAMINE [Suspect]
     Active Substance: METHAMPHETAMINE
     Route: 065
  28. METHAMPHETAMINE [Suspect]
     Active Substance: METHAMPHETAMINE
  29. NALOXONE [Suspect]
     Active Substance: NALOXONE
     Indication: Product used for unknown indication
  30. NALOXONE [Suspect]
     Active Substance: NALOXONE
     Route: 065
  31. NALOXONE [Suspect]
     Active Substance: NALOXONE
     Route: 065
  32. NALOXONE [Suspect]
     Active Substance: NALOXONE
  33. RISPERIDONE [Suspect]
     Active Substance: RISPERIDONE
     Indication: Product used for unknown indication
  34. RISPERIDONE [Suspect]
     Active Substance: RISPERIDONE
     Route: 065
  35. RISPERIDONE [Suspect]
     Active Substance: RISPERIDONE
     Route: 065
  36. RISPERIDONE [Suspect]
     Active Substance: RISPERIDONE

REACTIONS (3)
  - Death [Fatal]
  - Toxicity to various agents [Fatal]
  - Overdose [Fatal]
